APPROVED DRUG PRODUCT: MIDAZOLAM HYDROCHLORIDE
Active Ingredient: MIDAZOLAM HYDROCHLORIDE
Strength: EQ 5MG BASE/ML
Dosage Form/Route: INJECTABLE;INJECTION
Application: A076020 | Product #002
Applicant: INTERNATIONAL MEDICATION SYSTEMS LTD
Approved: Jul 16, 2004 | RLD: No | RS: No | Type: DISCN